FAERS Safety Report 9264005 (Version 4)
Quarter: 2014Q2

REPORT INFORMATION
  Report Type: Spontaneous
  Country: US (occurrence: US)
  Receive Date: 20130430
  Receipt Date: 20140423
  Transmission Date: 20141212
  Serious: No
  Sender: FDA-Public Use
  Company Number: US-009507513-1304USA017108

PATIENT
  Sex: Male
  Weight: 86.62 kg

DRUGS (1)
  1. PROPECIA [Suspect]
     Indication: ALOPECIA
     Dosage: 1 MG, QD
     Route: 048
     Dates: start: 20050904, end: 20120404

REACTIONS (10)
  - Generalised anxiety disorder [Not Recovered/Not Resolved]
  - Stress at work [Unknown]
  - Hypogonadism [Unknown]
  - Blood cortisol abnormal [Unknown]
  - Insomnia [Unknown]
  - Asthenia [Unknown]
  - Sexual dysfunction [Not Recovered/Not Resolved]
  - Erectile dysfunction [Not Recovered/Not Resolved]
  - Libido decreased [Unknown]
  - Hair transplant [Unknown]
